FAERS Safety Report 15776900 (Version 3)
Quarter: 2019Q1

REPORT INFORMATION
  Report Type: Spontaneous
  Country: US (occurrence: US)
  Receive Date: 20181231
  Receipt Date: 20190211
  Transmission Date: 20190417
  Serious: No
  Sender: FDA-Public Use
  Company Number: US-PFIZER INC-2018533687

PATIENT
  Age: 55 Year
  Sex: Male
  Weight: 80.73 kg

DRUGS (1)
  1. CHANTIX [Suspect]
     Active Substance: VARENICLINE TARTRATE
     Indication: SMOKING CESSATION THERAPY
     Dosage: 0.5 MG, 2X/DAY [ONE IN THE MORNING AND ONE IN THE EVENING]
     Dates: start: 20181222

REACTIONS (8)
  - Intentional product misuse [Unknown]
  - Abdominal discomfort [Unknown]
  - Product taste abnormal [Unknown]
  - Vomiting [Unknown]
  - Nausea [Recovered/Resolved]
  - Dysgeusia [Unknown]
  - Defaecation urgency [Unknown]
  - Malaise [Unknown]

NARRATIVE: CASE EVENT DATE: 20181227
